FAERS Safety Report 12217611 (Version 1)
Quarter: 2016Q1

REPORT INFORMATION
  Report Type: Spontaneous
  Country: CN (occurrence: CN)
  Receive Date: 20160329
  Receipt Date: 20160329
  Transmission Date: 20160526
  Serious: Yes (Other)
  Sender: FDA-Public Use
  Company Number: CN-SUN PHARMACEUTICAL INDUSTRIES LTD-2016R1-113921

PATIENT
  Age: 54 Year
  Sex: Female

DRUGS (6)
  1. IRINOTECAN [Suspect]
     Active Substance: IRINOTECAN
     Indication: METASTATIC CARCINOID TUMOUR
     Dosage: 350 MG/M2, 2 CYCLES
     Route: 042
     Dates: start: 2015
  2. ROPIVACAINE [Concomitant]
     Active Substance: ROPIVACAINE
     Indication: PAIN
     Dosage: UNK
     Route: 037
  3. MORPHINE [Concomitant]
     Active Substance: MORPHINE
     Indication: PAIN
     Dosage: 6 MG, QD
     Route: 037
  4. IRBESARTAN. [Concomitant]
     Active Substance: IRBESARTAN
     Indication: HYPERTENSION
     Dosage: 10 MG, QD
     Route: 048
     Dates: start: 2011
  5. KETAMINE [Concomitant]
     Active Substance: KETAMINE
     Indication: PAIN
     Dosage: UNK
     Route: 037
  6. MORPHINE [Concomitant]
     Active Substance: MORPHINE
     Indication: PAIN
     Dosage: UNK
     Route: 037

REACTIONS (1)
  - Drug ineffective [Unknown]
